FAERS Safety Report 15667373 (Version 3)
Quarter: 2018Q4

REPORT INFORMATION
  Report Type: Report from Study
  Country: GB (occurrence: GB)
  Receive Date: 20181128
  Receipt Date: 20181206
  Transmission Date: 20190205
  Serious: Yes (Hospitalization)
  Sender: FDA-Public Use
  Company Number: GB-PFIZER INC-2018483339

PATIENT
  Weight: 9.5 kg

DRUGS (11)
  1. ONDANSETRON [Concomitant]
     Active Substance: ONDANSETRON
     Indication: PROPHYLAXIS
     Dosage: 2.0 MG, AS NEEDED
     Dates: start: 20180409
  2. MITOXANTRONE HCL [Suspect]
     Active Substance: MITOXANTRONE HYDROCHLORIDE
     Dosage: 3.82 MG/M2, DAILY
     Route: 042
     Dates: start: 20180216, end: 20180411
  3. CIPROFLOXACIN. [Concomitant]
     Active Substance: CIPROFLOXACIN
     Indication: PROPHYLAXIS
     Dosage: 95 UNK, UNK
     Dates: start: 20180224
  4. DOMPERIDONE [Concomitant]
     Active Substance: DOMPERIDONE
     Indication: PROPHYLAXIS
     Dosage: 2.6 MG, 3X/DAY
     Dates: start: 20180226
  5. CYTARABINE. [Suspect]
     Active Substance: CYTARABINE
     Dosage: 0.32 MG, UNK
     Route: 042
     Dates: start: 20180216, end: 20180417
  6. GEMTUZUMAB OZOGAMICIN [Suspect]
     Active Substance: GEMTUZUMAB OZOGAMICIN
     Dosage: 0.97 MG, (OTHER)
     Route: 042
     Dates: start: 20180219, end: 20180219
  7. MICAFUNGIN. [Concomitant]
     Active Substance: MICAFUNGIN SODIUM
     Indication: ANTIFUNGAL PROPHYLAXIS
     Dosage: 19 MG, ALTERNATE DAY
     Dates: start: 20180325
  8. PARACETAMOL [Concomitant]
     Active Substance: ACETAMINOPHEN
     Indication: PROPHYLAXIS
  9. RANITIDINE. [Concomitant]
     Active Substance: RANITIDINE
     Indication: PROPHYLAXIS
     Dosage: 19.5 MG, 2X/DAY
     Dates: start: 20180215
  10. COTRIMOXAZOLE [Concomitant]
     Active Substance: SULFAMETHOXAZOLE\TRIMETHOPRIM
     Indication: PROPHYLAXIS
     Dosage: 240 MG, 2X/DAY (SATURDAY AND SUNDAY ONLY)
     Dates: start: 20180224
  11. PARACETAMOL [Concomitant]
     Active Substance: ACETAMINOPHEN
     Indication: ANALGESIC THERAPY
     Dosage: 120 MG, AS NEEDED
     Dates: start: 20180219

REACTIONS (1)
  - Febrile neutropenia [Recovered/Resolved]

NARRATIVE: CASE EVENT DATE: 20180422
